FAERS Safety Report 12316326 (Version 1)
Quarter: 2016Q2

REPORT INFORMATION
  Report Type: Spontaneous
  Country: US (occurrence: US)
  Receive Date: 20160428
  Receipt Date: 20160428
  Transmission Date: 20160815
  Serious: Yes (Other)
  Sender: FDA-Public Use
  Company Number: PHHY2016US054777

PATIENT
  Age: 46 Year
  Sex: Male

DRUGS (2)
  1. HYDROCHLOROTHIAZIDE. [Suspect]
     Active Substance: HYDROCHLOROTHIAZIDE
     Indication: HYPERTENSION
     Route: 065
  2. TUMS [Suspect]
     Active Substance: CALCIUM CARBONATE
     Indication: PAIN
     Dosage: 30 DF, QD
     Route: 048

REACTIONS (3)
  - Hypercalcaemia [Recovering/Resolving]
  - Electrocardiogram ST segment elevation [Unknown]
  - Acute kidney injury [Unknown]
